FAERS Safety Report 8082607-6 (Version None)
Quarter: 2012Q1

REPORT INFORMATION
  Report Type: 
  Country: None (occurrence: None)
  Receive Date: 20120127
  Receipt Date: 20110223
  Transmission Date: 20120608
  Serious: No
  Sender: FDA-Public Use
  Company Number: US-ABBOTT-11P-163-0707226-00

PATIENT
  Age: 52 Year
  Sex: Female

DRUGS (17)
  1. DOCUSATE SODIUM [Concomitant]
     Indication: CONSTIPATION
  2. AMYTRIPTYLINE [Concomitant]
     Indication: PRODUCT USED FOR UNKNOWN INDICATION
     Dosage: 1 AT BEDTIME
  3. RANITIDINE [Concomitant]
     Indication: GASTROOESOPHAGEAL REFLUX DISEASE
     Dosage: 1-2 TABS DAILY
  4. CYMBALTA [Concomitant]
     Indication: DEPRESSION
     Dosage: ONE CAP AT BEDTIME
  5. LYRICA [Concomitant]
     Indication: PRODUCT USED FOR UNKNOWN INDICATION
  6. ESTRADIOL [Concomitant]
     Indication: HORMONE REPLACEMENT THERAPY
  7. METHADONE HCL [Concomitant]
     Indication: PAIN
  8. CYMBALTA [Concomitant]
     Indication: ANXIETY
  9. HUMIRA [Suspect]
     Indication: PSORIASIS
  10. CITRICAL GENERIC [Concomitant]
     Indication: CONSTIPATION
     Dosage: 1-2 TSP
  11. FENTYNAL PATCHES [Concomitant]
     Indication: PAIN
     Dosage: ONE PATCH EVERY 48 HOURS
  12. DIAZEPAM [Concomitant]
     Indication: DEPRESSION
  13. VOLTAREN [Concomitant]
     Indication: SKIN IRRITATION
     Dosage: APPLY TOPICAL GEL PRN
     Route: 061
  14. DIAZEPAM [Concomitant]
     Indication: ANXIETY
  15. CYMBALTA [Concomitant]
     Indication: PAIN
  16. OMEPRAZOLE [Concomitant]
     Indication: GASTROOESOPHAGEAL REFLUX DISEASE
     Dosage: 20MG DAILY
  17. LIDADERM PATCH [Concomitant]
     Indication: PAIN
     Dosage: WEAR FOR 11 HOURS, REMOVE FOR 11 HOURS

REACTIONS (4)
  - PAIN [None]
  - ARTHRALGIA [None]
  - JOINT SWELLING [None]
  - SKIN DISCOLOURATION [None]
